FAERS Safety Report 4658499-1 (Version None)
Quarter: 2005Q2

REPORT INFORMATION
  Report Type: 
  Country: None (occurrence: None)
  Receive Date: 20050510
  Receipt Date: 20050510
  Transmission Date: 20051028
  Serious: Yes (Life-Threatening)
  Sender: FDA-Public Use
  Company Number: None

PATIENT
  Age: 48 Year
  Sex: Male
  Weight: 115.6672 kg

DRUGS (1)
  1. CYPHER STENT [Suspect]

REACTIONS (3)
  - CORONARY ARTERY RESTENOSIS [None]
  - MYOCARDIAL INFARCTION [None]
  - STENT OCCLUSION [None]
